FAERS Safety Report 5898538-3 (Version None)
Quarter: 2008Q3

REPORT INFORMATION
  Report Type: 
  Country: None (occurrence: None)
  Receive Date: 20080925
  Receipt Date: 20080121
  Transmission Date: 20090109
  Serious: No
  Sender: FDA-Public Use
  Company Number: A0701988A

PATIENT
  Age: 36 Year
  Sex: Female

DRUGS (5)
  1. WELLBUTRIN XL [Suspect]
     Indication: DEPRESSION
     Dosage: 150MG PER DAY
     Route: 048
     Dates: start: 20071214
  2. LEXAPRO [Concomitant]
  3. METFORMIN HCL [Concomitant]
  4. FOLIC ACID [Concomitant]
  5. MULTI-VITAMINS [Concomitant]

REACTIONS (8)
  - DIZZINESS [None]
  - EAR PAIN [None]
  - MALAISE [None]
  - MIGRAINE [None]
  - OROPHARYNGEAL PAIN [None]
  - PYREXIA [None]
  - RASH [None]
  - STREPTOCOCCAL INFECTION [None]
